FAERS Safety Report 9774633 (Version 2)
Quarter: 2013Q4

REPORT INFORMATION
  Report Type: Report from Study
  Country: JP (occurrence: JP)
  Receive Date: 20131220
  Receipt Date: 20131220
  Transmission Date: 20140711
  Serious: Yes (Hospitalization, Other)
  Sender: FDA-Public Use
  Company Number: JP-ASTELLAS-2011JP001023

PATIENT
  Age: 36 Year
  Sex: Female

DRUGS (110)
  1. TACROLIMUS CAPSULES [Suspect]
     Indication: LUPUS NEPHRITIS
     Dosage: 3.0 MG, UNKNOWN/D
     Route: 048
     Dates: start: 20080730, end: 20100826
  2. PREDNISOLONE [Concomitant]
     Indication: LUPUS NEPHRITIS
     Dosage: 11 MG, UNKNOWN/D
     Route: 048
     Dates: end: 20081028
  3. PREDNISOLONE [Concomitant]
     Dosage: 10 MG, UNKNOWN/D
     Route: 048
     Dates: start: 20081029, end: 20090414
  4. PREDNISOLONE [Concomitant]
     Dosage: 9 MG, UNKNOWN/D
     Route: 048
     Dates: start: 20090415, end: 20091020
  5. PREDNISOLONE [Concomitant]
     Dosage: 15 MG, UNKNOWN/D
     Route: 048
     Dates: start: 20091021, end: 20100511
  6. PREDNISOLONE [Concomitant]
     Dosage: 12.5 MG, UNKNOWN/D
     Route: 048
     Dates: start: 20100512, end: 20100707
  7. PREDNISOLONE [Concomitant]
     Dosage: 10 MG, UNKNOWN/D
     Route: 048
     Dates: start: 20100708, end: 20100826
  8. PREDNISOLONE [Concomitant]
     Dosage: 10 MG, UNKNOWN/D
     Route: 048
     Dates: start: 20100901
  9. BLOSTAR M [Concomitant]
     Dosage: 20 MG, UNKNOWN/D
     Route: 048
     Dates: end: 20100826
  10. BLOSTAR M [Concomitant]
     Dosage: 20 MG, UNKNOWN/D
     Route: 048
     Dates: start: 20100901
  11. TOYOFAROL [Concomitant]
     Dosage: 0.5 UG, UNKNOWN/D
     Route: 048
     Dates: end: 20100826
  12. METHYCOBAL [Concomitant]
     Indication: NEUROPATHY PERIPHERAL
     Dosage: 1500 UG, UNKNOWN/D
     Route: 048
     Dates: end: 20100826
  13. FLOMOX [Concomitant]
     Indication: PLASMA CELL MYELOMA
     Dosage: 300 MG, UNKNOWN/D
     Route: 048
     Dates: start: 20100106, end: 20100108
  14. SOLANTAL [Concomitant]
     Indication: PLASMA CELL MYELOMA
     Dosage: 300 MG, UNKNOWN/D
     Route: 048
     Dates: start: 20100106, end: 20100108
  15. SOLANTAL [Concomitant]
     Indication: TRACHEOBRONCHITIS MYCOPLASMAL
     Route: 048
  16. MIYA BM [Concomitant]
     Indication: PLASMA CELL MYELOMA
     Dosage: 3 G, UNKNOWN/D
     Route: 048
     Dates: start: 20100106, end: 20100108
  17. MIYA BM [Concomitant]
     Dosage: 3 G, UNKNOWN/D
     Route: 048
     Dates: start: 20101028, end: 20101207
  18. AZUNOL [Concomitant]
     Indication: PLASMA CELL MYELOMA
     Dosage: UNK
     Route: 061
     Dates: start: 20100106, end: 20100108
  19. LORFENAMIN [Concomitant]
     Indication: PLASMA CELL MYELOMA
     Dosage: 60 MG, PRN
     Route: 048
     Dates: start: 20100109, end: 20100113
  20. LORFENAMIN [Concomitant]
     Dosage: 60 MG, UNKNOWN/D
     Route: 048
     Dates: start: 20100519, end: 20100528
  21. BACTRAMIN [Concomitant]
     Indication: PLASMA CELL MYELOMA
     Dosage: 1 DF, UNKNOWN/D
     Route: 048
     Dates: start: 20100202, end: 20100816
  22. BACTRAMIN [Concomitant]
     Dosage: 1 DF, UNKNOWN/D
     Route: 048
     Dates: start: 20100922, end: 20110301
  23. MAGNESIUM OXIDE [Concomitant]
     Indication: PLASMA CELL MYELOMA
     Dosage: 0.5 G, PRN
     Route: 048
     Dates: start: 20100304, end: 20100812
  24. MAGNESIUM OXIDE [Concomitant]
     Dosage: 1.5 G, UNKNOWN/D
     Route: 048
     Dates: start: 20110608, end: 20110719
  25. DECADRON [Concomitant]
     Indication: PLASMA CELL MYELOMA
     Dosage: 40 MG, UNKNOWN/D
     Route: 048
     Dates: start: 20100311, end: 20100313
  26. NEUROTROPIN [Concomitant]
     Indication: PLASMA CELL MYELOMA
     Dosage: 16 IU, UNKNOWN/D
     Route: 048
     Dates: start: 20100407, end: 20100716
  27. TIZANIN [Concomitant]
     Indication: PLASMA CELL MYELOMA
     Dosage: 3 MG, UNKNOWN/D
     Route: 048
     Dates: start: 20100420, end: 20100527
  28. TIZANIN [Concomitant]
     Dosage: 3 MG, UNKNOWN/D
     Route: 048
     Dates: start: 20100603, end: 20100621
  29. DEPAS [Concomitant]
     Indication: PLASMA CELL MYELOMA
     Dosage: 1 MG, UNKNOWN/D
     Route: 048
     Dates: start: 20100420, end: 20100527
  30. VONFENAC [Concomitant]
     Indication: PLASMA CELL MYELOMA
     Dosage: 25 MG, PRN
     Route: 054
     Dates: start: 20100425, end: 20100710
  31. CODEINE PHOSPHATE [Concomitant]
     Indication: PLASMA CELL MYELOMA
     Dosage: 0.3 G, UNKNOWN/D
     Route: 048
     Dates: start: 20100501, end: 20100510
  32. CODEINE PHOSPHATE [Concomitant]
     Dosage: 0.6 G, UNKNOWN/D
     Route: 048
     Dates: start: 20100511, end: 20100511
  33. CODEINE PHOSPHATE [Concomitant]
     Dosage: 0.7 G, UNKNOWN/D
     Route: 048
     Dates: start: 20100512, end: 20100512
  34. CODEINE PHOSPHATE [Concomitant]
     Dosage: 0.4 G, UNKNOWN/D
     Route: 048
     Dates: start: 20100513, end: 20100513
  35. NAUZELIN [Concomitant]
     Indication: PLASMA CELL MYELOMA
     Dosage: 0.3 G, UNKNOWN/D
     Route: 048
     Dates: start: 20100501, end: 20100510
  36. NAUZELIN [Concomitant]
     Dosage: 0.6 G, UNKNOWN/D
     Route: 048
     Dates: start: 20100511, end: 20100511
  37. NAUZELIN [Concomitant]
     Dosage: 0.7 G, UNKNOWN/D
     Route: 048
     Dates: start: 20100512, end: 20100512
  38. NAUZELIN [Concomitant]
     Dosage: 0.4 G, UNKNOWN/D
     Route: 048
     Dates: start: 20100513, end: 20100513
  39. GABAPEN [Concomitant]
     Indication: PLASMA CELL MYELOMA
     Dosage: 600 MG, UNKNOWN/D
     Route: 048
     Dates: start: 20100513, end: 20100623
  40. PHENOBARBITAL [Concomitant]
     Indication: PLASMA CELL MYELOMA
     Dosage: 0.1 G, UNKNOWN/D
     Route: 048
     Dates: start: 20100513, end: 20100601
  41. XYLOCAINE [Concomitant]
     Indication: PLASMA CELL MYELOMA
     Dosage: UNK
     Route: 061
     Dates: start: 20100519, end: 20100810
  42. SILBERAN [Concomitant]
     Indication: PLASMA CELL MYELOMA
     Dosage: UNK
     Route: 061
     Dates: start: 20100530, end: 20100601
  43. OXYCONTIN [Concomitant]
     Indication: PLASMA CELL MYELOMA
     Dosage: 5 MG, UNKNOWN/D
     Route: 048
     Dates: start: 20100602, end: 20100604
  44. OXYCONTIN [Concomitant]
     Dosage: 10 MG, UNKNOWN/D
     Route: 048
     Dates: start: 20100605, end: 20100615
  45. OXYCONTIN [Concomitant]
     Dosage: 20 MG, UNKNOWN/D
     Route: 048
     Dates: start: 20100616, end: 20100701
  46. OXYCONTIN [Concomitant]
     Dosage: 25 MG, UNKNOWN/D
     Route: 048
     Dates: start: 20100702, end: 20100702
  47. OXYCONTIN [Concomitant]
     Dosage: 30 MG, UNKNOWN/D
     Route: 048
     Dates: start: 20100703, end: 20100706
  48. OXYCONTIN [Concomitant]
     Dosage: 35 MG, UNKNOWN/D
     Route: 048
     Dates: start: 20100707, end: 20100707
  49. OXYCONTIN [Concomitant]
     Dosage: 40 MG, UNKNOWN/D
     Route: 048
     Dates: start: 20100708, end: 20100715
  50. OXYCONTIN [Concomitant]
     Dosage: 50 MG, UNKNOWN/D
     Route: 048
     Dates: start: 20100716, end: 20100716
  51. OXYCONTIN [Concomitant]
     Dosage: 60 MG, UNKNOWN/D
     Route: 048
     Dates: start: 20100717, end: 20100718
  52. OXYCONTIN [Concomitant]
     Dosage: 70 MG, UNKNOWN/D
     Route: 048
     Dates: start: 20100719, end: 20100719
  53. OXYCONTIN [Concomitant]
     Dosage: 80 MG, UNKNOWN/D
     Route: 048
     Dates: start: 20100720, end: 20100727
  54. OXYCONTIN [Concomitant]
     Dosage: 100 MG, UNKNOWN/D
     Route: 048
     Dates: start: 20100728, end: 20100801
  55. OXYCONTIN [Concomitant]
     Dosage: 110 MG, UNKNOWN/D
     Route: 048
     Dates: start: 20100802, end: 20100819
  56. OXYCONTIN [Concomitant]
     Dosage: 130 MG, UNKNOWN/D
     Route: 048
     Dates: start: 20100820, end: 20100822
  57. OXYCONTIN [Concomitant]
     Dosage: 120 MG, UNKNOWN/D
     Route: 048
     Dates: start: 20100823, end: 20100823
  58. OXINORM [Concomitant]
     Indication: PLASMA CELL MYELOMA
     Dosage: 2.5 MG, PRN
     Route: 048
     Dates: start: 20100602, end: 20100615
  59. OXINORM [Concomitant]
     Dosage: 5 MG, PRN
     Route: 048
     Dates: start: 20100616, end: 20100630
  60. OXINORM [Concomitant]
     Dosage: 10 MG, PRN
     Route: 048
     Dates: start: 20100701, end: 20100701
  61. OXINORM [Concomitant]
     Dosage: 25 MG, PRN
     Route: 048
     Dates: start: 20100702, end: 20100702
  62. OXINORM [Concomitant]
     Dosage: 10 MG, PRN
     Route: 048
     Dates: start: 20100703, end: 20100703
  63. OXINORM [Concomitant]
     Dosage: 20 MG, PRN
     Route: 048
     Dates: start: 20100704, end: 20100718
  64. OXINORM [Concomitant]
     Dosage: 10 MG, PRN
     Route: 048
     Dates: start: 20100719, end: 20100725
  65. OXINORM [Concomitant]
     Dosage: 20 MG, PRN
     Route: 048
     Dates: start: 20100726, end: 20100726
  66. OXINORM [Concomitant]
     Dosage: 10 MG, PRN
     Route: 048
     Dates: start: 20100727, end: 20100811
  67. OXINORM [Concomitant]
     Dosage: 20 MG, PRN
     Route: 048
     Dates: start: 20100812, end: 20100812
  68. HYPEN [Concomitant]
     Indication: PLASMA CELL MYELOMA
     Dosage: 400 MG, UNKNOWN/D
     Route: 048
     Dates: start: 20100624, end: 20100716
  69. SELBEX [Concomitant]
     Indication: PLASMA CELL MYELOMA
     Dosage: 100 MG, UNKNOWN/D
     Route: 048
     Dates: start: 20100624, end: 20100716
  70. DEXALTIN [Concomitant]
     Indication: PLASMA CELL MYELOMA
     Dosage: UNK
     Route: 061
     Dates: start: 20100705, end: 20100805
  71. NOVAMIN [Concomitant]
     Indication: PLASMA CELL MYELOMA
     Dosage: 15 MG, UNKNOWN/D
     Route: 048
     Dates: start: 20100709, end: 20100712
  72. CRAVIT [Concomitant]
     Indication: CYSTITIS
     Dosage: 500 MG, UNKNOWN/D
     Route: 048
     Dates: start: 20100714, end: 20100727
  73. CRAVIT [Concomitant]
     Indication: PLASMA CELL MYELOMA
     Dosage: 500 MG, UNKNOWN/D
     Route: 048
     Dates: start: 20100806, end: 20100811
  74. CRAVIT [Concomitant]
     Indication: HEADACHE
     Dosage: UNK
     Route: 048
     Dates: start: 20120508
  75. CRAVIT [Concomitant]
     Indication: C-REACTIVE PROTEIN INCREASED
  76. HYALEIN [Concomitant]
     Indication: PLASMA CELL MYELOMA
     Dosage: UNK
     Route: 047
     Dates: start: 20100721, end: 20100805
  77. METHYLPREDNISOLONE SODIUM SUCCINATE [Concomitant]
     Indication: LUPUS NEPHRITIS
     Dosage: 10 ML, UNKNOWN/D
     Route: 041
     Dates: start: 20100827, end: 20100831
  78. SEISHOKU [Concomitant]
     Indication: LUPUS NEPHRITIS
     Dosage: 100 ML, UNKNOWN/D
     Route: 041
     Dates: start: 20100827, end: 20100831
  79. VANACEFAN [Concomitant]
     Indication: CYSTITIS
     Dosage: 200 MG, UNKNOWN/D
     Route: 048
     Dates: start: 20100813, end: 20100817
  80. CLARITH [Concomitant]
     Indication: BRONCHITIS
     Dosage: 400 MG, UNKNOWN/D
     Route: 048
     Dates: start: 20100820, end: 20100826
  81. CLARITH [Concomitant]
     Indication: TRACHEOBRONCHITIS MYCOPLASMAL
     Route: 048
  82. CLARITH [Concomitant]
     Indication: BRONCHITIS
     Route: 048
  83. COLDRIN [Concomitant]
     Indication: BRONCHITIS
     Dosage: 12.5 MG, PRN
     Route: 048
     Dates: start: 20100820, end: 20100826
  84. COLDRIN                            /00093802/ [Concomitant]
     Indication: TRACHEOBRONCHITIS MYCOPLASMAL
     Route: 048
  85. COLDRIN                            /00093802/ [Concomitant]
     Indication: BRONCHITIS
     Route: 048
  86. DIOVAN [Concomitant]
     Indication: HYPERTENSION
     Dosage: 80 MG, UNKNOWN/D
     Route: 048
     Dates: start: 20100826, end: 20100826
  87. DIOVAN [Concomitant]
     Dosage: 80 MG, UNKNOWN/D
     Route: 048
     Dates: start: 20100903
  88. FENTOS [Concomitant]
     Indication: PLASMA CELL MYELOMA
     Dosage: 6 MG, UNKNOWN/D
     Route: 062
     Dates: start: 20100824, end: 20100824
  89. FENTOS [Concomitant]
     Dosage: 4 MG, UNKNOWN/D
     Route: 062
     Dates: start: 20100825, end: 20100905
  90. FENTOS [Concomitant]
     Dosage: 5 MG, UNKNOWN/D
     Route: 062
     Dates: start: 20100906, end: 20100908
  91. FENTOS [Concomitant]
     Dosage: 6 MG, UNKNOWN/D
     Route: 062
     Dates: start: 20100909, end: 20100910
  92. FENTOS [Concomitant]
     Dosage: 5 MG, UNKNOWN/D
     Route: 062
     Dates: start: 20100911, end: 20101011
  93. FENTOS [Concomitant]
     Dosage: 4 MG, UNKNOWN/D
     Route: 062
     Dates: start: 20101012, end: 20101027
  94. FENTOS [Concomitant]
     Dosage: 2 MG, UNKNOWN/D
     Route: 062
     Dates: start: 20101028, end: 20101031
  95. FENTOS [Concomitant]
     Dosage: 1.3 MG, UNKNOWN/D
     Route: 062
     Dates: start: 20101101, end: 20101101
  96. FENTOS [Concomitant]
     Dosage: 1 MG, UNKNOWN/D
     Route: 062
     Dates: start: 20101102, end: 20101222
  97. PURSENNID [Concomitant]
     Indication: PLASMA CELL MYELOMA
     Dosage: 24 MG, PRN
     Route: 048
     Dates: start: 20100906, end: 20100915
  98. UREPEARL [Concomitant]
     Indication: PLASMA CELL MYELOMA
     Dosage: UNK
     Route: 061
     Dates: start: 20100916, end: 20101109
  99. WHITE PETROLEUM [Concomitant]
     Indication: PLASMA CELL MYELOMA
     Dosage: UNK
     Route: 065
     Dates: start: 20100916, end: 20101109
  100. TANNALBIN [Concomitant]
     Indication: PLASMA CELL MYELOMA
     Dosage: 3 G, UNKNOWN/D
     Route: 048
     Dates: start: 20101028, end: 20101103
  101. TANNALBIN [Concomitant]
     Dosage: 3 G, UNKNOWN/D
     Route: 048
     Dates: start: 20101109, end: 20101115
  102. TANNALBIN [Concomitant]
     Dosage: 3 G, UNKNOWN/D
     Route: 048
     Dates: start: 20101208, end: 20110118
  103. ANPEC [Concomitant]
     Indication: PLASMA CELL MYELOMA
     Dosage: 10 MG, UNKNOWN/D
     Route: 054
     Dates: start: 20100903, end: 20100905
  104. ASPARA-CA [Concomitant]
     Indication: PLASMA CELL MYELOMA
     Dosage: 1200 MG, UNKNOWN/D
     Route: 048
     Dates: start: 20101108, end: 20110419
  105. LENDORMIN [Concomitant]
     Indication: PLASMA CELL MYELOMA
     Dosage: 0.25 MG, UNKNOWN/D
     Route: 048
     Dates: start: 20101118, end: 20101207
  106. CALBLOCK [Concomitant]
     Indication: HYPERTENSION
     Dosage: 16 MG, UNKNOWN/D
     Route: 048
     Dates: start: 20101208
  107. MAINHEART [Concomitant]
     Indication: HYPERTENSION
     Dosage: 5 MG, UNKNOWN/D
     Route: 048
     Dates: start: 20110119
  108. ASTHPHYLLIN                        /00566201/ [Concomitant]
     Indication: TRACHEOBRONCHITIS MYCOPLASMAL
     Route: 048
  109. REZALTAS [Concomitant]
     Indication: HYPERTENSION
     Route: 048
  110. OLMETEC [Concomitant]
     Indication: HYPERTENSION
     Route: 048

REACTIONS (11)
  - Plasma cell myeloma [Recovering/Resolving]
  - Herpes zoster [Recovering/Resolving]
  - Cystitis [Recovered/Resolved]
  - Haemolytic anaemia [Recovered/Resolved]
  - Bronchitis [Recovered/Resolved]
  - Hypertension [Recovering/Resolving]
  - Intestinal obstruction [Recovered/Resolved]
  - Headache [Recovered/Resolved]
  - C-reactive protein increased [Recovered/Resolved]
  - Tracheobronchitis mycoplasmal [Recovered/Resolved]
  - Bronchitis [Recovered/Resolved]
